FAERS Safety Report 25059087 (Version 1)
Quarter: 2025Q1

REPORT INFORMATION
  Report Type: Spontaneous
  Country: JP (occurrence: JP)
  Receive Date: 20250310
  Receipt Date: 20250310
  Transmission Date: 20250409
  Serious: Yes (Death, Other)
  Sender: GILEAD
  Company Number: JP-GILEAD-2025-0705128

PATIENT
  Age: 79 Year
  Sex: Female

DRUGS (1)
  1. VEKLURY [Suspect]
     Active Substance: REMDESIVIR
     Indication: COVID-19
     Route: 065
     Dates: start: 202502

REACTIONS (2)
  - Death [Fatal]
  - Intercepted product prescribing error [Recovered/Resolved]

NARRATIVE: CASE EVENT DATE: 20250201
